FAERS Safety Report 6757920-2 (Version None)
Quarter: 2010Q2

REPORT INFORMATION
  Report Type: 
  Country: None (occurrence: None)
  Receive Date: 20100607
  Receipt Date: 20100506
  Transmission Date: 20101027
  Serious: Yes (Hospitalization)
  Sender: FDA-Public Use
  Company Number: US-SANOFI-AVENTIS-2010SA030419

PATIENT
  Age: 0 Day
  Sex: Male

DRUGS (2)
  1. LOVENOX [Suspect]
     Route: 058
     Dates: start: 20090101, end: 20090101
  2. LOVENOX [Suspect]
     Route: 058
     Dates: start: 20090101, end: 20100501

REACTIONS (4)
  - CONTUSION [None]
  - DRUG EXPOSURE DURING PREGNANCY [None]
  - DRUG EXPOSURE VIA BREAST MILK [None]
  - GASPING SYNDROME [None]
